FAERS Safety Report 15372241 (Version 1)
Quarter: 2018Q3

REPORT INFORMATION
  Report Type: Spontaneous
  Country: US (occurrence: US)
  Receive Date: 20180911
  Receipt Date: 20180911
  Transmission Date: 20181010
  Serious: No
  Sender: FDA-Public Use
  Company Number: US-009507513-1809USA004277

PATIENT
  Age: 10 Year
  Sex: Male

DRUGS (5)
  1. ECULIZUMAB [Concomitant]
     Active Substance: ECULIZUMAB
  2. PRINIVIL [Suspect]
     Active Substance: LISINOPRIL
     Indication: GLOMERULONEPHRITIS PROLIFERATIVE
     Route: 048
  3. PREDNISONE. [Concomitant]
     Active Substance: PREDNISONE
  4. RITUXIMAB. [Concomitant]
     Active Substance: RITUXIMAB
  5. MYCOPHENOLATE MOFETIL. [Concomitant]
     Active Substance: MYCOPHENOLATE MOFETIL

REACTIONS (1)
  - Product use in unapproved indication [Unknown]
